FAERS Safety Report 13877120 (Version 6)
Quarter: 2017Q4

REPORT INFORMATION
  Report Type: Spontaneous
  Country: MX (occurrence: MX)
  Receive Date: 20170817
  Receipt Date: 20171011
  Transmission Date: 20180320
  Serious: Yes (Other)
  Sender: FDA-Public Use
  Company Number: MX-GLAXOSMITHKLINE-MX2017GSK126858

PATIENT
  Age: 55 Year
  Sex: Female
  Weight: 54 kg

DRUGS (9)
  1. SERETIDE [Suspect]
     Active Substance: FLUTICASONE PROPIONATE\SALMETEROL XINAFOATE
     Indication: PNEUMONITIS
  2. METICORTEN [Concomitant]
     Active Substance: PREDNISONE
     Indication: PNEUMONITIS
     Dosage: UNK
     Dates: start: 20170808
  3. REZPLEN [Concomitant]
     Indication: BRONCHITIS
  4. METICORTEN [Concomitant]
     Active Substance: PREDNISONE
     Indication: BRONCHITIS
  5. REZPLEN [Concomitant]
     Indication: PNEUMONITIS
     Dosage: 1 DF, QD (TABLET)
     Dates: start: 20170808
  6. SERETIDE [Suspect]
     Active Substance: FLUTICASONE PROPIONATE\SALMETEROL XINAFOATE
     Indication: EMPHYSEMA
  7. CELESTONE [Concomitant]
     Active Substance: BETAMETHASONE
     Indication: PNEUMONITIS
     Dosage: 3 DF, UNK (APPLICATION(S))
     Dates: start: 20170808
  8. CELESTONE [Concomitant]
     Active Substance: BETAMETHASONE
     Indication: BRONCHITIS
  9. SERETIDE [Suspect]
     Active Substance: FLUTICASONE PROPIONATE\SALMETEROL XINAFOATE
     Indication: BRONCHIECTASIS
     Dosage: 2 PUFF(S), BID
     Route: 055
     Dates: start: 20170808, end: 20170825

REACTIONS (21)
  - Tongue eruption [Recovered/Resolved]
  - Dysgeusia [Recovered/Resolved]
  - Hypoaesthesia [Recovered/Resolved]
  - Headache [Recovered/Resolved]
  - Tongue discomfort [Recovered/Resolved]
  - Anxiety [Recovered/Resolved]
  - Palpitations [Recovered/Resolved]
  - Product use in unapproved indication [Recovered/Resolved]
  - Glossitis [Recovered/Resolved]
  - Bronchiectasis [Recovered/Resolved]
  - Pseudomonas infection [Recovered/Resolved]
  - Discomfort [Recovered/Resolved]
  - Asthenia [Recovered/Resolved]
  - Tongue discolouration [Recovered/Resolved]
  - Asphyxia [Recovered/Resolved]
  - Tachycardia [Recovered/Resolved]
  - Hyperhidrosis [Recovered/Resolved]
  - Ageusia [Recovered/Resolved]
  - Off label use [Recovered/Resolved]
  - Tongue injury [Recovered/Resolved]
  - Blepharospasm [Recovered/Resolved]

NARRATIVE: CASE EVENT DATE: 20170808
